FAERS Safety Report 11045558 (Version 3)
Quarter: 2015Q2

REPORT INFORMATION
  Report Type: Report from Study
  Country: US (occurrence: US)
  Receive Date: 20150417
  Receipt Date: 20150604
  Transmission Date: 20150821
  Serious: Yes (Hospitalization, Other)
  Sender: FDA-Public Use
  Company Number: US-ACTELION-A-NJ2015-115077

PATIENT
  Age: 73 Year
  Sex: Female

DRUGS (3)
  1. TYVASO [Suspect]
     Active Substance: TREPROSTINIL
     Indication: COUGH
     Route: 065
  2. MACITENTAN [Suspect]
     Active Substance: MACITENTAN
     Indication: PULMONARY ARTERIAL HYPERTENSION
     Dosage: 10 MG, QD
     Route: 048
     Dates: start: 20141215
  3. TYVASO [Suspect]
     Active Substance: TREPROSTINIL
     Indication: WHEEZING

REACTIONS (12)
  - Asthma [Recovered/Resolved]
  - Dysgeusia [Unknown]
  - Hypotension [Unknown]
  - Leukaemia [Unknown]
  - Blood pressure diastolic decreased [Unknown]
  - Transfusion [Unknown]
  - Abdominal pain upper [Unknown]
  - Wheezing [Unknown]
  - Feeling cold [Unknown]
  - Pneumonia [Unknown]
  - Cough [Unknown]
  - Epistaxis [Unknown]

NARRATIVE: CASE EVENT DATE: 20150421
